FAERS Safety Report 9243060 (Version 4)
Quarter: 2013Q4

REPORT INFORMATION
  Report Type: Spontaneous
  Country: US (occurrence: US)
  Receive Date: 20130419
  Receipt Date: 20131220
  Transmission Date: 20140711
  Serious: Yes (Death, Hospitalization)
  Sender: FDA-Public Use
  Company Number: US-B.I. PHARMACEUTICALS,INC./RIDGEFIELD-2013-BI-10304BP

PATIENT
  Age: 81 Year
  Sex: Male
  Weight: 68.04 kg

DRUGS (12)
  1. PRADAXA [Suspect]
     Indication: ATRIAL FLUTTER
     Dosage: 300 MG
     Dates: start: 20110203, end: 20110809
  2. PRADAXA [Suspect]
     Indication: ATRIAL FIBRILLATION
  3. CENTRUM VITAMIN [Concomitant]
  4. ASPIRIN [Concomitant]
     Dosage: 81 MG
  5. SPIRONOLACTONE [Concomitant]
     Dosage: 12.5 MG
  6. FUROSEMIDE [Concomitant]
     Dosage: 80 MG
  7. SIMVASTATIN [Concomitant]
     Dosage: 20 NR
  8. SYNTHROID [Concomitant]
     Dosage: 0.075 MG
  9. CELEXA [Concomitant]
     Dosage: 20 MG
  10. CARVEDILOL [Concomitant]
     Dosage: 12.5 MG
  11. AMIODARONE [Concomitant]
     Dosage: 200 MG
  12. IRON SUPPLEMENT [Concomitant]

REACTIONS (9)
  - Cerebral haemorrhage [Fatal]
  - Haemorrhagic stroke [Fatal]
  - Ischaemic stroke [Unknown]
  - Gastrointestinal haemorrhage [Unknown]
  - Epistaxis [Unknown]
  - Coagulopathy [Unknown]
  - Anaemia [Unknown]
  - Renal failure acute [Unknown]
  - Fall [Unknown]
